FAERS Safety Report 9341901 (Version 2)
Quarter: 2013Q3

REPORT INFORMATION
  Report Type: Spontaneous
  Country: US (occurrence: US)
  Receive Date: 20130611
  Receipt Date: 20130917
  Transmission Date: 20140515
  Serious: No
  Sender: FDA-Public Use
  Company Number: US-BIOGENIDEC-2013BI051181

PATIENT
  Sex: Female

DRUGS (4)
  1. TYSABRI [Suspect]
     Indication: MULTIPLE SCLEROSIS
     Route: 042
     Dates: start: 20061004, end: 20061004
  2. TYSABRI [Suspect]
     Indication: MULTIPLE SCLEROSIS
     Route: 042
     Dates: start: 20101206, end: 20111206
  3. TYSABRI [Suspect]
     Indication: MULTIPLE SCLEROSIS
     Route: 042
     Dates: start: 20130121
  4. AMPYRA [Concomitant]
     Indication: MULTIPLE SCLEROSIS
     Dates: start: 20100206, end: 20110206

REACTIONS (17)
  - Speech disorder [Recovered/Resolved]
  - Gait disturbance [Recovered/Resolved]
  - Frustration [Unknown]
  - Depressed mood [Unknown]
  - Fall [Recovered/Resolved]
  - Immune system disorder [Unknown]
  - General symptom [Unknown]
  - Hypoaesthesia [Unknown]
  - Insomnia [Unknown]
  - Pain [Unknown]
  - Back disorder [Unknown]
  - Fungal infection [Unknown]
  - Rash [Not Recovered/Not Resolved]
  - Multiple sclerosis relapse [Recovered/Resolved]
  - Influenza [Recovered/Resolved]
  - Infection susceptibility increased [Recovered/Resolved]
  - Malaise [Unknown]
